FAERS Safety Report 10416183 (Version 1)
Quarter: 2014Q3

REPORT INFORMATION
  Report Type: Spontaneous
  Country: US (occurrence: US)
  Receive Date: 20140828
  Receipt Date: 20140828
  Transmission Date: 20150326
  Serious: Yes (Other)
  Sender: FDA-Public Use
  Company Number: US-PFIZER INC-2014235793

PATIENT
  Sex: Male

DRUGS (2)
  1. NEURONTIN [Suspect]
     Active Substance: GABAPENTIN
     Indication: PERIPHERAL SWELLING
     Dosage: UNK
  2. NEURONTIN [Suspect]
     Active Substance: GABAPENTIN
     Indication: GAIT DISTURBANCE

REACTIONS (2)
  - Pain [Unknown]
  - Drug dependence [Unknown]
